FAERS Safety Report 7613506-9 (Version None)
Quarter: 2011Q3

REPORT INFORMATION
  Report Type: 
  Country: None (occurrence: None)
  Receive Date: 20110708
  Receipt Date: 20110629
  Transmission Date: 20111222
  Serious: Yes (Hospitalization, Other)
  Sender: FDA-Public Use
  Company Number: 2010SP057052

PATIENT
  Age: 43 Year
  Sex: Female
  Weight: 60.3284 kg

DRUGS (3)
  1. NUVARING [Suspect]
     Indication: CONTRACEPTION
     Dates: start: 20070101
  2. NUVARING [Suspect]
     Indication: CONTRACEPTION
     Dates: start: 20080301, end: 20081106
  3. CITALOPRAM HYDROBROMIDE [Concomitant]

REACTIONS (28)
  - LIGAMENT SPRAIN [None]
  - CONTUSION [None]
  - GINGIVAL BLEEDING [None]
  - STRESS [None]
  - TRICUSPID VALVE INCOMPETENCE [None]
  - PNEUMONIA [None]
  - ANXIETY [None]
  - DEPRESSION SUICIDAL [None]
  - COGNITIVE DISORDER [None]
  - EXERCISE TOLERANCE DECREASED [None]
  - MUSCULOSKELETAL CHEST PAIN [None]
  - RHINITIS ALLERGIC [None]
  - INCORRECT DOSE ADMINISTERED [None]
  - PULMONARY INFARCTION [None]
  - PROTHROMBIN TIME PROLONGED [None]
  - MULTIPLE INJURIES [None]
  - PAIN [None]
  - MUSCLE SPASMS [None]
  - FEAR [None]
  - CHEST PAIN [None]
  - MEMORY IMPAIRMENT [None]
  - PULMONARY EMBOLISM [None]
  - INTERNATIONAL NORMALISED RATIO INCREASED [None]
  - APHASIA [None]
  - FATIGUE [None]
  - MENORRHAGIA [None]
  - CONDITION AGGRAVATED [None]
  - DISTURBANCE IN ATTENTION [None]
